FAERS Safety Report 7960724-6 (Version None)
Quarter: 2011Q4

REPORT INFORMATION
  Report Type: 
  Country: None (occurrence: None)
  Receive Date: 20111206
  Receipt Date: 20110510
  Transmission Date: 20120403
  Serious: No
  Sender: FDA-Public Use
  Company Number: PHEH2011US010564

PATIENT
  Sex: Female

DRUGS (3)
  1. AZITHROMYCIN [Concomitant]
  2. CLARITIN [Concomitant]
  3. TASIGNA [Suspect]
     Indication: CHRONIC MYELOID LEUKAEMIA
     Dosage: 400 MG, BID
     Route: 048
     Dates: start: 20100721

REACTIONS (1)
  - MEDICATION ERROR [None]
